FAERS Safety Report 11130782 (Version 1)
Quarter: 2015Q2

REPORT INFORMATION
  Report Type: Spontaneous
  Country: US (occurrence: None)
  Receive Date: 20150520
  Receipt Date: 20150520
  Transmission Date: 20150821
  Serious: Yes (Hospitalization)
  Sender: FDA-Public Use
  Company Number: US-H14001-15-00746

PATIENT
  Age: 32 Year
  Sex: Female

DRUGS (1)
  1. VALPROIC ACID (VALPROIC ACID) (UNKNOWN) (VALPROIC ACID) [Suspect]
     Active Substance: VALPROIC ACID
     Indication: MIGRAINE PROPHYLAXIS

REACTIONS (4)
  - Hepatotoxicity [None]
  - Transaminases increased [None]
  - Hyperbilirubinaemia [None]
  - Flank pain [None]
